FAERS Safety Report 19933647 (Version 8)
Quarter: 2024Q1

REPORT INFORMATION
  Report Type: Report from Study
  Country: JP (occurrence: JP)
  Receive Date: 20211008
  Receipt Date: 20240115
  Transmission Date: 20240409
  Serious: Yes (Other)
  Sender: FDA-Public Use
  Company Number: JP-ORPHANEU-2021004005

PATIENT

DRUGS (6)
  1. PASIREOTIDE [Suspect]
     Active Substance: PASIREOTIDE
     Indication: Pituitary-dependent Cushing^s syndrome
     Dosage: 10 MILLIGRAM/ 4WEEKS
     Route: 030
     Dates: start: 20190204, end: 20200122
  2. PASIREOTIDE [Suspect]
     Active Substance: PASIREOTIDE
     Dosage: 20 MILLIGRAM
     Route: 030
     Dates: start: 20200219, end: 20201222
  3. PASIREOTIDE [Suspect]
     Active Substance: PASIREOTIDE
     Dosage: 20 MILLIGRAM
     Route: 030
     Dates: start: 20210217, end: 20211222
  4. PASIREOTIDE [Suspect]
     Active Substance: PASIREOTIDE
     Dosage: 20 MILLIGRAM
     Route: 030
     Dates: start: 20220317
  5. METYRAPONE [Concomitant]
     Active Substance: METYRAPONE
     Indication: Pituitary-dependent Cushing^s syndrome
     Dosage: UNK
  6. HYDROCORTISONE [Concomitant]
     Active Substance: HYDROCORTISONE
     Indication: Adrenal insufficiency
     Dosage: 1000 MILLIGRAM DAILY

REACTIONS (5)
  - Hyperadrenocorticism [Recovering/Resolving]
  - Hyperadrenocorticism [Recovering/Resolving]
  - Blood corticotrophin increased [Recovering/Resolving]
  - Blood corticotrophin increased [Recovering/Resolving]
  - Hyperglycaemia [Not Recovered/Not Resolved]

NARRATIVE: CASE EVENT DATE: 20190619
